FAERS Safety Report 20001131 (Version 3)
Quarter: 2022Q1

REPORT INFORMATION
  Report Type: Report from Study
  Country: ES (occurrence: None)
  Receive Date: 20211027
  Receipt Date: 20220223
  Transmission Date: 20220423
  Serious: Yes (Hospitalization)
  Sender: FDA-Public Use
  Company Number: ES-ROCHE-2938640

PATIENT
  Age: 70 Year
  Sex: Female
  Weight: 52 kg

DRUGS (8)
  1. ATEZOLIZUMAB [Suspect]
     Active Substance: ATEZOLIZUMAB
     Indication: Triple negative breast cancer
     Dosage: ON 22/SEP/2021, SHE RECEIVED THE MOST RECENT DOSE OF ATEZOLIZUMAB (1200 MG) PRIOR TO ONSET OF AE AND
     Route: 041
     Dates: start: 20210209
  2. PACLITAXEL [Suspect]
     Active Substance: PACLITAXEL
     Indication: Triple negative breast cancer
     Dosage: ON 27/APR/2021, SHE RECEIVED THE MOST RECENT DOSE OF PACLITAXEL (130 MG) PRIOR TO ONSET OF AE AND SA
     Route: 042
     Dates: start: 20210209
  3. DOXORUBICIN [Suspect]
     Active Substance: DOXORUBICIN
     Indication: Triple negative breast cancer
     Dosage: ON 15/JUN/2021, SHE RECEIVED THE MOST RECENT DOSE OF DOXORUBICIN (97 MG) PRIOR TO ONSET OF AE AND SA
     Route: 042
     Dates: start: 20210505
  4. CYCLOPHOSPHAMIDE [Suspect]
     Active Substance: CYCLOPHOSPHAMIDE
     Indication: Triple negative breast cancer
     Dosage: ON 15/JUN/2021, SHE RECEIVED THE MOST RECENT DOSE OF CYCLOPHOSPHAMIDE (973 MG) PRIOR TO ONSET OF AE
     Route: 042
     Dates: start: 20210505
  5. FILGRASTIM [Suspect]
     Active Substance: FILGRASTIM
     Indication: Triple negative breast cancer
     Route: 058
     Dates: start: 20210512, end: 20210515
  6. FILGRASTIM [Suspect]
     Active Substance: FILGRASTIM
     Route: 058
     Dates: start: 20210525, end: 20210529
  7. FILGRASTIM [Suspect]
     Active Substance: FILGRASTIM
     Route: 058
     Dates: start: 20210608, end: 20210611
  8. FILGRASTIM [Suspect]
     Active Substance: FILGRASTIM
     Route: 058
     Dates: start: 20210622, end: 20210625

REACTIONS (1)
  - Acute kidney injury [Recovered/Resolved]

NARRATIVE: CASE EVENT DATE: 20211014
